FAERS Safety Report 24532901 (Version 1)
Quarter: 2024Q4

REPORT INFORMATION
  Report Type: Spontaneous
  Country: US (occurrence: None)
  Receive Date: 20241021
  Receipt Date: 20241021
  Transmission Date: 20250114
  Serious: No
  Sender: Public
  Company Number: None

PATIENT
  Age: 59 Year
  Sex: Female
  Weight: 94.35 kg

DRUGS (1)
  1. COSENTYX [Suspect]
     Active Substance: SECUKINUMAB
     Indication: Hidradenitis
     Dosage: FREQUENCY : WEEKLY;?INJECT 300 MG (1 PEN) SUBCUTANEOUSLY ONCE A WEEK FOR 5 WEEKS AS DIRECTED??
     Route: 058
     Dates: start: 202405

REACTIONS (5)
  - Alcohol withdrawal syndrome [None]
  - Urinary tract infection [None]
  - Sinusitis [None]
  - Cyst [None]
  - Axillary mass [None]
